FAERS Safety Report 7115220-5 (Version None)
Quarter: 2010Q4

REPORT INFORMATION
  Report Type: 
  Country: None (occurrence: None)
  Receive Date: 20101122
  Receipt Date: 20101109
  Transmission Date: 20110411
  Serious: Yes (Other)
  Sender: FDA-Public Use
  Company Number: PHHY2010CA76132

PATIENT
  Sex: Male

DRUGS (1)
  1. SANDOSTATIN LAR [Suspect]
     Indication: PANCREATITIS
     Dosage: 20MG EVERY 4 WEEKS
     Route: 030
     Dates: start: 20101105

REACTIONS (2)
  - BLOOD PRESSURE INCREASED [None]
  - INJECTION SITE PAIN [None]
